FAERS Safety Report 24792175 (Version 12)
Quarter: 2025Q3

REPORT INFORMATION
  Report Type: Report from Study
  Country: CO (occurrence: CO)
  Receive Date: 20241231
  Receipt Date: 20250710
  Transmission Date: 20251020
  Serious: Yes (Hospitalization, Other)
  Sender: AMGEN
  Company Number: CO-AMGEN-COLSL2024255029

PATIENT
  Age: 76 Year
  Sex: Female

DRUGS (2)
  1. VECTIBIX [Suspect]
     Active Substance: PANITUMUMAB
     Indication: Colorectal cancer metastatic
     Dosage: 300 MILLIGRAM, Q2WK
     Route: 040
     Dates: start: 20240704, end: 20241115
  2. VECTIBIX [Suspect]
     Active Substance: PANITUMUMAB
     Dosage: 300 MILLIGRAM, Q2WK
     Route: 040
     Dates: start: 20250220, end: 20250220

REACTIONS (11)
  - Back pain [Not Recovered/Not Resolved]
  - Asthenia [Not Recovered/Not Resolved]
  - Abdominal pain [Not Recovered/Not Resolved]
  - Colon operation [Recovering/Resolving]
  - Abdominal wall wound [Recovering/Resolving]
  - Nosocomial infection [Not Recovered/Not Resolved]
  - Colorectal cancer metastatic [Not Recovered/Not Resolved]
  - Urinary fistula [Recovering/Resolving]
  - Pneumonia [Recovering/Resolving]
  - Decubitus ulcer [Recovering/Resolving]
  - Abdominal infection [Recovering/Resolving]

NARRATIVE: CASE EVENT DATE: 20241226
